FAERS Safety Report 4582244-1 (Version None)
Quarter: 2005Q1

REPORT INFORMATION
  Report Type: 
  Country: None (occurrence: None)
  Receive Date: 20050119
  Receipt Date: 20040721
  Transmission Date: 20050727
  Serious: Yes (Hospitalization)
  Sender: FDA-Public Use
  Company Number: 2004-BP-05876RO

PATIENT
  Age: 72 Year
  Sex: Female
  Weight: 71.7 kg

DRUGS (11)
  1. LITHIUM CARBONATE [Suspect]
     Indication: BIPOLAR DISORDER
     Dosage: 600 MG (300 MG), PO
     Route: 048
  2. PULMICORT [Concomitant]
  3. ALBUTEROL [Concomitant]
  4. MIRALAX [Concomitant]
  5. THEO-DUR [Concomitant]
  6. IBUPROFEN [Concomitant]
  7. VALIUM [Concomitant]
  8. ALDACTONE [Concomitant]
  9. LASIX [Concomitant]
  10. STOOL SOFTENER (DOCUSATE SODIUM) [Concomitant]
  11. VITAMINS (VITAMINS) [Concomitant]

REACTIONS (1)
  - THERAPEUTIC AGENT TOXICITY [None]
